FAERS Safety Report 9708961 (Version 1)
Quarter: 2013Q4

REPORT INFORMATION
  Report Type: Spontaneous
  Country: GB (occurrence: None)
  Receive Date: 20131122
  Receipt Date: 20131122
  Transmission Date: 20140711
  Serious: No
  Sender: FDA-Public Use
  Company Number: AUR-APL-2013-09502

PATIENT
  Age: 88 Year
  Sex: Male

DRUGS (12)
  1. FLUCONAZOLE [Suspect]
     Indication: PRODUCT USED FOR UNKNOWN INDICATION
     Dosage: 50MG (50MG, 1 IN 1D) ORAL
     Route: 048
     Dates: start: 20130830, end: 20130904
  2. BENDROFLUMETHIAZIDE (BENDROFLUMETHIAZIDE) [Suspect]
     Indication: PRODUCT USED FOR UNKNOWN INDICATION
     Dosage: 2.5MG (2.5MG, 1 IN 1D) ORAL
     Route: 048
     Dates: end: 20130904
  3. ALLOPURINOL [Concomitant]
  4. CETIRIZINE (CETIRIZINE) [Concomitant]
  5. METFORMIN (METFORMIN) [Concomitant]
  6. MOVICOL (POLYETHYL.GLYC. W/POTAS.CHLOR./SOD.BICARB) [Concomitant]
  7. NYSTATIN (NYSTATIN) [Concomitant]
  8. OTOMIZE (OTOMIZE) [Concomitant]
  9. FLUTICASEONE W/SALMETEROL (FLUTICASONE W/SALMETEROL) [Concomitant]
  10. SIMVASTATIN (SIMVASTATIN) [Concomitant]
  11. TAMSULOSIN (TAMSULOSIN) [Concomitant]
  12. TIOTROPIUM (TIOTROPIUM) [Concomitant]

REACTIONS (4)
  - Hyponatraemia [None]
  - Renal impairment [None]
  - Delirium [None]
  - Malaise [None]
